FAERS Safety Report 5803734-7 (Version None)
Quarter: 2008Q3

REPORT INFORMATION
  Report Type: 
  Country: None (occurrence: None)
  Receive Date: 20080703
  Receipt Date: 20080618
  Transmission Date: 20090109
  Serious: Yes (Death)
  Sender: FDA-Public Use
  Company Number: 8033900

PATIENT
  Age: 37 Year
  Sex: Male

DRUGS (2)
  1. PREDNISOLONE [Suspect]
     Indication: PROPHYLAXIS AGAINST GRAFT VERSUS HOST DISEASE
  2. CYCLOSPORINE [Suspect]
     Indication: PROPHYLAXIS AGAINST GRAFT VERSUS HOST DISEASE

REACTIONS (11)
  - ACUTE GRAFT VERSUS HOST DISEASE IN LIVER [None]
  - AGITATION [None]
  - AZOTAEMIA [None]
  - CENTRAL PONTINE MYELINOLYSIS [None]
  - DRUG LEVEL INCREASED [None]
  - ENCEPHALOPATHY [None]
  - HAEMODIALYSIS [None]
  - HYPERBILIRUBINAEMIA [None]
  - INTRAVENTRICULAR HAEMORRHAGE [None]
  - PSYCHOTIC DISORDER [None]
  - SKIN EXFOLIATION [None]
